FAERS Safety Report 11423111 (Version 1)
Quarter: 2015Q3

REPORT INFORMATION
  Report Type: Spontaneous
  Country: US (occurrence: None)
  Receive Date: 20150826
  Receipt Date: 20150826
  Transmission Date: 20151125
  Serious: Yes (Other)
  Sender: FDA-Public Use
  Company Number: None

PATIENT
  Age: 67 Year
  Sex: Female
  Weight: 123.83 kg

DRUGS (8)
  1. ZOCOR [Concomitant]
     Active Substance: SIMVASTATIN
  2. SAVELLA [Concomitant]
     Active Substance: MILNACIPRAN HYDROCHLORIDE
  3. PRAMIPEXOLE. [Concomitant]
     Active Substance: PRAMIPEXOLE
  4. NIFEDICAL XL [Concomitant]
     Active Substance: NIFEDIPINE
  5. LYRICA [Suspect]
     Active Substance: PREGABALIN
     Indication: FIBROMYALGIA
     Dosage: 1 PILL 3X A DAY THREE TIMES DAILY TAKEN BY MOUTH
     Route: 048
     Dates: start: 20150703, end: 20150805
  6. TOPROL XL [Concomitant]
     Active Substance: METOPROLOL SUCCINATE
  7. LUNESTA [Concomitant]
     Active Substance: ESZOPICLONE
  8. SUCRALFATE. [Concomitant]
     Active Substance: SUCRALFATE

REACTIONS (4)
  - Feeling abnormal [None]
  - Loss of consciousness [None]
  - Diplopia [None]
  - Mental impairment [None]

NARRATIVE: CASE EVENT DATE: 20150805
